FAERS Safety Report 10948823 (Version 4)
Quarter: 2015Q2

REPORT INFORMATION
  Report Type: Report from Study
  Country: BR (occurrence: BR)
  Receive Date: 20150324
  Receipt Date: 20150508
  Transmission Date: 20150821
  Serious: Yes (Hospitalization, Other)
  Sender: FDA-Public Use
  Company Number: BR-SA-2015SA035722

PATIENT
  Age: 51 Year
  Sex: Female
  Weight: 68 kg

DRUGS (4)
  1. LANTUS [Suspect]
     Active Substance: INSULIN GLARGINE
     Indication: TYPE 1 DIABETES MELLITUS
     Dosage: IN THE MORNING
     Route: 065
     Dates: start: 1988
  2. CLIKSTAR [Concomitant]
     Active Substance: CLIKSTAR
  3. URBANIL [Concomitant]
     Active Substance: CLOBAZAM
     Indication: DEPRESSION
     Route: 048
     Dates: start: 1988
  4. HUMALOG [Concomitant]
     Active Substance: INSULIN LISPRO
     Indication: TYPE 1 DIABETES MELLITUS

REACTIONS (22)
  - Hospitalisation [Unknown]
  - Malaise [Unknown]
  - Muscular weakness [Unknown]
  - Pain [Not Recovered/Not Resolved]
  - Muscle spasms [Not Recovered/Not Resolved]
  - Unresponsive to stimuli [Recovered/Resolved]
  - Joint injury [Recovering/Resolving]
  - Cerebrovascular accident [Unknown]
  - Coma [Recovered/Resolved]
  - Feeling drunk [Recovered/Resolved]
  - Neuropathy peripheral [Not Recovered/Not Resolved]
  - Speech disorder [Unknown]
  - Ill-defined disorder [Unknown]
  - Gait disturbance [Recovered/Resolved]
  - Sensory loss [Unknown]
  - Condition aggravated [Not Recovered/Not Resolved]
  - Balance disorder [Unknown]
  - Fall [Unknown]
  - Hypoglycaemia [Recovered/Resolved]
  - Tendon rupture [Unknown]
  - Haemorrhage [Unknown]
  - Seizure [Recovered/Resolved]

NARRATIVE: CASE EVENT DATE: 1997
